FAERS Safety Report 9213047 (Version 1)
Quarter: 2013Q1

REPORT INFORMATION
  Report Type: Spontaneous
  Country: US (occurrence: None)
  Receive Date: 20120820
  Receipt Date: 20120820
  Transmission Date: 20140127
  Serious: No
  Sender: FDA-Public Use
  Company Number: 1000036835

PATIENT
  Age: 70 Year
  Sex: Female

DRUGS (5)
  1. VIIBRYD [Suspect]
     Indication: DEPRESSION
     Route: 048
     Dates: start: 20120627, end: 20120628
  2. LEVOTHYROXINE (LEVOTHYROXINE SODIUM) (LEVOTHYROXINE SODIUM) [Concomitant]
  3. PLQUENIL (HYDROCHLORQUINE) (HYDROCHLORQUINE) [Concomitant]
  4. CELEBREX (CELCOXIB) (CELECOXIB) [Concomitant]
  5. TRAZODONE (TRAZODONE) (TRAZODONE) [Concomitant]

REACTIONS (4)
  - Influenza like illness [None]
  - Diarrhoea [None]
  - Nausea [None]
  - Headache [None]
